FAERS Safety Report 13040451 (Version 1)
Quarter: 2016Q4

REPORT INFORMATION
  Report Type: Spontaneous
  Country: US (occurrence: US)
  Receive Date: 20161219
  Receipt Date: 20161219
  Transmission Date: 20170207
  Serious: Yes (Other)
  Sender: FDA-Public Use
  Company Number: None

PATIENT
  Sex: Female

DRUGS (4)
  1. VENLAFAXINE [Concomitant]
     Active Substance: VENLAFAXINE HYDROCHLORIDE
  2. LETRAZOLE [Concomitant]
     Active Substance: LETROZOLE
  3. IBRANCE [Suspect]
     Active Substance: PALBOCICLIB
     Indication: NEOPLASM MALIGNANT
     Route: 048
     Dates: start: 20161026
  4. TAMOXIFEN [Concomitant]
     Active Substance: TAMOXIFEN

REACTIONS (3)
  - Chest pain [None]
  - Therapy change [None]
  - Blood count abnormal [None]

NARRATIVE: CASE EVENT DATE: 2016
